FAERS Safety Report 22267459 (Version 2)
Quarter: 2023Q2

REPORT INFORMATION
  Report Type: Spontaneous
  Country: US (occurrence: US)
  Receive Date: 20230429
  Receipt Date: 20230616
  Transmission Date: 20230721
  Serious: Yes (Other)
  Sender: FDA-Public Use
  Company Number: US-UNITED THERAPEUTICS-UNT-2023-011499

PATIENT
  Sex: Female
  Weight: 64.399 kg

DRUGS (5)
  1. REMODULIN [Suspect]
     Active Substance: TREPROSTINIL
     Indication: Pulmonary arterial hypertension
     Dosage: 0.0505 ?G/KG, CONTINUING
     Route: 041
  2. REMODULIN [Suspect]
     Active Substance: TREPROSTINIL
     Dosage: UNK, CONTINUING
     Route: 041
     Dates: start: 20230125
  3. OPSUMIT [Concomitant]
     Active Substance: MACITENTAN
     Indication: Product used for unknown indication
     Dosage: UNK
     Route: 065
  4. XARELTO [Concomitant]
     Active Substance: RIVAROXABAN
     Indication: Product used for unknown indication
     Dosage: UNK
     Route: 065
  5. SILDENAFIL CITRATE [Concomitant]
     Active Substance: SILDENAFIL CITRATE
     Indication: Product used for unknown indication
     Dosage: UNK
     Route: 065

REACTIONS (13)
  - Syncope [Recovered/Resolved]
  - Thrombosis [Unknown]
  - Vascular device occlusion [Unknown]
  - Palpitations [Unknown]
  - Fall [Recovered/Resolved with Sequelae]
  - Device physical property issue [Unknown]
  - Device leakage [Unknown]
  - Device failure [Unknown]
  - Device infusion issue [Unknown]
  - Hyperhidrosis [Unknown]
  - Asthenia [Unknown]
  - Device dislocation [Unknown]
  - Injection site pain [Not Recovered/Not Resolved]
